FAERS Safety Report 21248976 (Version 3)
Quarter: 2022Q3

REPORT INFORMATION
  Report Type: Spontaneous
  Country: JP (occurrence: JP)
  Receive Date: 20220824
  Receipt Date: 20220926
  Transmission Date: 20221026
  Serious: Yes (Death, Other)
  Sender: FDA-Public Use
  Company Number: JP-OTSUKA-2022_041870

PATIENT
  Age: 85 Year
  Sex: Female

DRUGS (2)
  1. TOLVAPTAN [Suspect]
     Active Substance: TOLVAPTAN
     Indication: Cardiac failure
     Dosage: 4 MG/DAY, UNK
     Route: 041
     Dates: start: 20220802, end: 20220807
  2. LASIX [Concomitant]
     Active Substance: FUROSEMIDE
     Indication: Product used for unknown indication
     Dosage: 40MG/DAY
     Route: 041
     Dates: end: 20220807

REACTIONS (3)
  - Blood sodium increased [Unknown]
  - Gastric cancer [Fatal]
  - Underdose [Unknown]

NARRATIVE: CASE EVENT DATE: 20220808
